FAERS Safety Report 6156704-6 (Version None)
Quarter: 2009Q2

REPORT INFORMATION
  Report Type: 
  Country: None (occurrence: None)
  Receive Date: 20090413
  Receipt Date: 20090413
  Transmission Date: 20091009
  Serious: Yes (Hospitalization)
  Sender: FDA-Public Use
  Company Number: None

PATIENT
  Sex: Female
  Weight: 39.4 kg

DRUGS (2)
  1. CYCLOPHOSPHAMIDE [Suspect]
     Dosage: 7400 MG
  2. THIOTEPA [Suspect]
     Dosage: 1110 MG

REACTIONS (7)
  - CULTURE URINE POSITIVE [None]
  - ESCHERICHIA INFECTION [None]
  - HYPOTENSION [None]
  - MUCOSAL INFLAMMATION [None]
  - NEUTROPENIA [None]
  - PAIN [None]
  - PYREXIA [None]
